FAERS Safety Report 14602141 (Version 2)
Quarter: 2020Q1

REPORT INFORMATION
  Report Type: Spontaneous
  Country: US (occurrence: US)
  Receive Date: 20180306
  Receipt Date: 20200320
  Transmission Date: 20200409
  Serious: Yes (Hospitalization)
  Sender: FDA-Public Use
  Company Number: US-B.I. PHARMACEUTICALS,INC./RIDGEFIELD-2018-BI-011344

PATIENT
  Age: 69 Year
  Sex: Male
  Weight: 81.64 kg

DRUGS (15)
  1. COREG [Concomitant]
     Active Substance: CARVEDILOL
     Indication: PRODUCT USED FOR UNKNOWN INDICATION
     Dosage: TAKE 12.5 MG BY MOUTH 2 (TWO) TIMES A DAY WITH BREAKFAST AND DINNER.
     Route: 048
     Dates: start: 20110907, end: 20170912
  2. ADVAIR HFA [Concomitant]
     Active Substance: FLUTICASONE PROPIONATE\SALMETEROL XINAFOATE
     Indication: PRODUCT USED FOR UNKNOWN INDICATION
     Dosage: STRENGTH: 250-50 MCG/DOSE DISKUS.?INHALE 1 PUFF INTO THE LUNGS 2 (TWO) TIMES A DAY
     Route: 055
     Dates: start: 20110907, end: 20170907
  3. PRADAXA [Suspect]
     Active Substance: DABIGATRAN ETEXILATE MESYLATE
     Indication: ATRIAL FIBRILLATION
     Dosage: TAKE 150 MG BY MOUTH 2 TIMES A DAY
     Route: 048
     Dates: start: 20110907, end: 20110907
  4. MULTAQ [Concomitant]
     Active Substance: DRONEDARONE
     Indication: PRODUCT USED FOR UNKNOWN INDICATION
     Dosage: TAKE 400 MG BY MOUTH 2 (TWO) TIMES A DAY WITH BREAKFAST AND DINNER.
     Route: 048
     Dates: start: 20111111, end: 20170405
  5. LASIX [Concomitant]
     Active Substance: FUROSEMIDE
     Indication: PRODUCT USED FOR UNKNOWN INDICATION
     Dosage: TAKE 20 MG BY MOUTH 2 (TWO) TIMES A DAY.
     Route: 048
     Dates: start: 20110907, end: 20170907
  6. LEVOTHYROXINE. [Concomitant]
     Active Substance: LEVOTHYROXINE
     Indication: PRODUCT USED FOR UNKNOWN INDICATION
     Dosage: TAKE 25 MCG BY MOUTH EVERY MORNING BEFORE BREAKFAST.
     Route: 048
     Dates: start: 20110907, end: 20170907
  7. DIPHENOXYLATE/ATROPINE [Concomitant]
     Active Substance: ATROPINE\DIPHENOXYLATE
     Indication: PRODUCT USED FOR UNKNOWN INDICATION
     Route: 065
     Dates: start: 20160214, end: 20160412
  8. FERROUS SULFATE. [Concomitant]
     Active Substance: FERROUS SULFATE
     Indication: PRODUCT USED FOR UNKNOWN INDICATION
     Dosage: TAKE 325 MG BY MOUTH DAILY WITH BREAKFAST
     Route: 048
     Dates: start: 20140909, end: 20170907
  9. COMBIVENT [Concomitant]
     Active Substance: ALBUTEROL SULFATE\IPRATROPIUM BROMIDE
     Indication: WHEEZING
     Dosage: STRENGTH : 18-103 MCG/ACT. INHALE 2 PUFFS INTO THE LUNGS EVERY 6 HOURS AS NEEDED FOR WHEEZING.
     Route: 055
     Dates: start: 20110907, end: 20170907
  10. PRADAXA [Suspect]
     Active Substance: DABIGATRAN ETEXILATE MESYLATE
     Dosage: TAKE 150 MG BY MOUTH 2 TIMES A DAY
     Route: 048
     Dates: start: 20111111, end: 20150912
  11. NEXIUM [Concomitant]
     Active Substance: ESOMEPRAZOLE MAGNESIUM
     Indication: PRODUCT USED FOR UNKNOWN INDICATION
     Dosage: TAKE 40 MG BY MOUTH CAPSULE EVERY MORNING BEFORE BREAKFAST.
     Route: 048
     Dates: start: 20110907, end: 20170907
  12. DUONEB [Concomitant]
     Active Substance: ALBUTEROL SULFATE\IPRATROPIUM BROMIDE
     Indication: PRODUCT USED FOR UNKNOWN INDICATION
     Dosage: 0.5-2.5 MG/ 3 ML. INHALE 3 ML INTO THE LUNGS EVERY 6 (SIX) HOURS.
     Route: 055
  13. LISINOPRIL. [Concomitant]
     Active Substance: LISINOPRIL
     Indication: PRODUCT USED FOR UNKNOWN INDICATION
     Dosage: TAKE 5 MG BY MOUTH DAILY
     Route: 048
     Dates: start: 20110907, end: 20170907
  14. ZANTAC [Concomitant]
     Active Substance: RANITIDINE HYDROCHLORIDE
     Indication: PRODUCT USED FOR UNKNOWN INDICATION
     Dosage: TAKE 150 MG BY MOUTH AT BEDTIME
     Route: 048
     Dates: start: 20130305, end: 20170907
  15. POTASSIUM CHLORIDE. [Concomitant]
     Active Substance: POTASSIUM CHLORIDE
     Indication: PRODUCT USED FOR UNKNOWN INDICATION
     Dosage: TAKE 20 MEQ BY MOUTH DAILY.
     Route: 048
     Dates: start: 20110907, end: 20170907

REACTIONS (1)
  - Gastrointestinal haemorrhage [Recovering/Resolving]

NARRATIVE: CASE EVENT DATE: 20151026
